FAERS Safety Report 25028651 (Version 7)
Quarter: 2025Q3

REPORT INFORMATION
  Report Type: Report from Study
  Country: JP (occurrence: JP)
  Receive Date: 20250302
  Receipt Date: 20250930
  Transmission Date: 20251020
  Serious: Yes (Other)
  Sender: TAKEDA
  Company Number: JP-TAKEDA-2025TJP002013

PATIENT
  Age: 71 Year
  Sex: Male
  Weight: 57 kg

DRUGS (17)
  1. MARIBAVIR [Suspect]
     Active Substance: MARIBAVIR
     Indication: Cytomegalovirus infection
     Dates: start: 20241107, end: 20241217
  2. MARIBAVIR [Suspect]
     Active Substance: MARIBAVIR
     Dates: start: 20241226, end: 20250114
  3. MARIBAVIR [Suspect]
     Active Substance: MARIBAVIR
  4. TACROLIMUS [Concomitant]
     Active Substance: TACROLIMUS
     Indication: Cytomegalovirus infection
  5. MYCOPHENOLATE MOFETIL [Concomitant]
     Active Substance: MYCOPHENOLATE MOFETIL
     Indication: Cytomegalovirus infection
  6. MYCOPHENOLATE MOFETIL [Concomitant]
     Active Substance: MYCOPHENOLATE MOFETIL
  7. VONOPRAZAN FUMARATE [Concomitant]
     Active Substance: VONOPRAZAN FUMARATE
  8. BENZBROMARONE [Concomitant]
     Active Substance: BENZBROMARONE
  9. DIPYRIDAMOLE [Concomitant]
     Active Substance: DIPYRIDAMOLE
  10. ENTRESTO [Concomitant]
     Active Substance: SACUBITRIL\VALSARTAN
  11. DAPRODUSTAT [Concomitant]
     Active Substance: DAPRODUSTAT
  12. ALFACALCIDOL [Concomitant]
     Active Substance: ALFACALCIDOL
  13. METHYLPREDNISOLONE [Concomitant]
     Active Substance: METHYLPREDNISOLONE
     Indication: Cytomegalovirus infection
  14. VALGANCICLOVIR HYDROCHLORIDE [Concomitant]
     Active Substance: VALGANCICLOVIR HYDROCHLORIDE
     Indication: Cytomegalovirus infection
  15. VALGANCICLOVIR HYDROCHLORIDE [Concomitant]
     Active Substance: VALGANCICLOVIR HYDROCHLORIDE
  16. VALGANCICLOVIR HYDROCHLORIDE [Concomitant]
     Active Substance: VALGANCICLOVIR HYDROCHLORIDE
  17. VALGANCICLOVIR HYDROCHLORIDE [Concomitant]
     Active Substance: VALGANCICLOVIR HYDROCHLORIDE

REACTIONS (3)
  - Cytomegalovirus viraemia [Recovering/Resolving]
  - Taste disorder [Unknown]
  - Genotype drug resistance test abnormal [Recovering/Resolving]

NARRATIVE: CASE EVENT DATE: 20250109
